FAERS Safety Report 6410917-4 (Version None)
Quarter: 2009Q4

REPORT INFORMATION
  Report Type: 
  Country: None (occurrence: None)
  Receive Date: 20091022
  Receipt Date: 20091009
  Transmission Date: 20100525
  Serious: Yes (Other)
  Sender: FDA-Public Use
  Company Number: FR-GENENTECH-290818

PATIENT
  Age: 40 Year
  Sex: Female

DRUGS (2)
  1. AVASTIN [Suspect]
     Indication: BREAST CANCER METASTATIC
     Route: 065
  2. TAXOL [Suspect]
     Indication: BREAST CANCER METASTATIC
     Route: 065

REACTIONS (1)
  - MACULAR OEDEMA [None]
